FAERS Safety Report 8369239-7 (Version None)
Quarter: 2012Q2

REPORT INFORMATION
  Report Type: 
  Country: None (occurrence: None)
  Receive Date: 20120517
  Receipt Date: 20120517
  Transmission Date: 20120825
  Serious: Yes (Other)
  Sender: FDA-Public Use
  Company Number: None

PATIENT
  Sex: Female
  Weight: 51.8 kg

DRUGS (1)
  1. PRADAXA [Suspect]
     Indication: ATRIAL FIBRILLATION
     Dosage: 75 MG TWICE DAILY ORAL
     Route: 048
     Dates: start: 20110501, end: 20120401

REACTIONS (2)
  - VAGINAL HAEMORRHAGE [None]
  - ABDOMINAL PAIN UPPER [None]
